FAERS Safety Report 15484248 (Version 1)
Quarter: 2018Q4

REPORT INFORMATION
  Report Type: Spontaneous
  Country: CN (occurrence: CN)
  Receive Date: 20181010
  Receipt Date: 20181010
  Transmission Date: 20190205
  Serious: Yes (Hospitalization)
  Sender: FDA-Public Use
  Company Number: CN-ELI_LILLY_AND_COMPANY-CN201810002806

PATIENT
  Age: 50 Year
  Sex: Female
  Weight: 45 kg

DRUGS (4)
  1. HUMALOG [Suspect]
     Active Substance: INSULIN LISPRO
     Dosage: 6 U, EACH MORNING
     Route: 058
     Dates: end: 20180813
  2. HUMALOG [Suspect]
     Active Substance: INSULIN LISPRO
     Indication: BLOOD GLUCOSE INCREASED
     Dosage: 8 U, TID
     Route: 058
     Dates: start: 20180808
  3. HUMALOG [Suspect]
     Active Substance: INSULIN LISPRO
     Dosage: 8 U, BID
     Route: 058
     Dates: end: 20180813
  4. INSULIN GLARGINE [Concomitant]
     Active Substance: INSULIN GLARGINE
     Indication: BLOOD GLUCOSE INCREASED
     Dosage: 18 U, DAILY
     Route: 058
     Dates: start: 20180808, end: 20180813

REACTIONS (1)
  - Diabetes mellitus inadequate control [Recovering/Resolving]

NARRATIVE: CASE EVENT DATE: 20180908
